FAERS Safety Report 4388681-2 (Version None)
Quarter: 2004Q2

REPORT INFORMATION
  Report Type: 
  Country: None (occurrence: None)
  Receive Date: 20040624
  Receipt Date: 20040610
  Transmission Date: 20050107
  Serious: Yes (Hospitalization)
  Sender: FDA-Public Use
  Company Number: JP-JNJFOC-20031203938

PATIENT
  Age: 50 Year
  Sex: Female
  Weight: 45.5 kg

DRUGS (22)
  1. REMICADE [Suspect]
     Indication: RHEUMATOID ARTHRITIS
     Dosage: 3 MG/KG, 1 IN 1 AS NECESSARY, INTRAVENOUS DRIP
     Route: 041
     Dates: start: 20031009, end: 20031009
  2. REMICADE [Suspect]
     Indication: RHEUMATOID ARTHRITIS
     Dosage: 3 MG/KG, 1 IN 1 AS NECESSARY, INTRAVENOUS DRIP
     Route: 041
     Dates: start: 20031023, end: 20031023
  3. REMICADE [Suspect]
     Indication: RHEUMATOID ARTHRITIS
     Dosage: 3 MG/KG, 1 IN 1 AS NECESSARY, INTRAVENOUS DRIP
     Route: 041
     Dates: start: 20031119, end: 20031119
  4. REMICADE [Suspect]
     Indication: RHEUMATOID ARTHRITIS
     Dosage: 3 MG/KG, 1 IN 1 AS NECESSARY, INTRAVENOUS DRIP
     Route: 041
     Dates: start: 20040119, end: 20040119
  5. REMICADE [Suspect]
     Indication: RHEUMATOID ARTHRITIS
     Dosage: 3 MG/KG, 1 IN 1 AS NECESSARY, INTRAVENOUS DRIP
     Route: 041
     Dates: start: 20040306, end: 20040306
  6. REMICADE [Suspect]
     Indication: RHEUMATOID ARTHRITIS
     Dosage: 3 MG/KG, 1 IN 1 AS NECESSARY, INTRAVENOUS DRIP
     Route: 041
     Dates: start: 20040511, end: 20040511
  7. RHEUMATREX [Concomitant]
  8. ISONIAZID [Concomitant]
  9. BACTRIM [Concomitant]
  10. PREDNISOLONE [Concomitant]
  11. LIMETHASON (ALL OTHER THERAPEUTIC PRODUCTS) [Concomitant]
  12. AZULFIDINE EN-TABS [Concomitant]
  13. MOBIC [Concomitant]
  14. VOLTAREN [Concomitant]
  15. FOLIC ACID [Concomitant]
  16. SCITECH (ALL OTHER THERAPEUTIC PRODUCTS) [Concomitant]
  17. LANSOPRAZOLE [Concomitant]
  18. PYRIDOXAL (PYRIDOXAL PHOSPHATE) [Concomitant]
  19. CHILARGEN (ALL OTHER THERAPEUTIC PRODUCTS) [Concomitant]
  20. BLOPRESS (CANDESARTAN CILEXETIL) [Concomitant]
  21. ACTONEL [Concomitant]
  22. SUPERIOR (ALL OTHER THERAPEUTIC PRODUCTS) [Concomitant]

REACTIONS (3)
  - ATYPICAL MYCOBACTERIAL INFECTION [None]
  - DRUG INEFFECTIVE [None]
  - LUNG DISORDER [None]
